FAERS Safety Report 8311192-6 (Version None)
Quarter: 2012Q2

REPORT INFORMATION
  Report Type: 
  Country: None (occurrence: None)
  Receive Date: 20120425
  Receipt Date: 20111031
  Transmission Date: 20120825
  Serious: No
  Sender: FDA-Public Use
  Company Number: US-MYLANLABS-2011S1022625

PATIENT
  Age: 82 Year
  Sex: Female

DRUGS (1)
  1. NITROFURANTOIN MONOHYDRATE/MACROCRYSTALS [Suspect]
     Indication: CYSTITIS
     Route: 048
     Dates: start: 20111026, end: 20111027

REACTIONS (2)
  - TREMOR [None]
  - CHEST PAIN [None]
